FAERS Safety Report 5940097-0 (Version None)
Quarter: 2008Q4

REPORT INFORMATION
  Report Type: 
  Country: None (occurrence: None)
  Receive Date: 20081104
  Receipt Date: 20081029
  Transmission Date: 20090506
  Serious: Yes (Other)
  Sender: FDA-Public Use
  Company Number: PHEH2007US14854

PATIENT
  Sex: Female

DRUGS (6)
  1. ZELNORM [Suspect]
     Dosage: 6 MG, QD
     Route: 048
  2. METFORMIN HCL [Concomitant]
  3. ISOSORBIDE [Concomitant]
  4. DIOVAN [Concomitant]
  5. ADVAIR DISKUS 100/50 [Concomitant]
  6. LIPITOR [Concomitant]

REACTIONS (5)
  - CORONARY ARTERIAL STENT INSERTION [None]
  - CORONARY ARTERY BYPASS [None]
  - CORONARY ARTERY OCCLUSION [None]
  - MYOCARDIAL INFARCTION [None]
  - VASCULAR BYPASS DYSFUNCTION [None]
